FAERS Safety Report 16314517 (Version 2)
Quarter: 2019Q3

REPORT INFORMATION
  Report Type: Report from Study
  Country: US (occurrence: US)
  Receive Date: 20190515
  Receipt Date: 20190711
  Transmission Date: 20191004
  Serious: Yes (Death, Other)
  Sender: FDA-Public Use
  Company Number: US-BAYER-2019-096065

PATIENT
  Age: 76 Year
  Sex: Male

DRUGS (10)
  1. ETHYL ALCOHOL [Concomitant]
     Active Substance: ALCOHOL
     Dosage: UNK UNK, QD
     Route: 048
  2. TUBERCULIN NOS [Concomitant]
     Active Substance: TUBERCULIN PURIFIED PROTEIN DERIVATIVE
     Dosage: UNK UNK, QD
     Route: 023
     Dates: start: 20190501
  3. ADEMPAS [Suspect]
     Active Substance: RIOCIGUAT
     Indication: PULMONARY ARTERIAL HYPERTENSION
     Dosage: 2 MG, TID
     Route: 048
     Dates: end: 20190505
  4. APPETON MULTIVITAMIN LYSINE [ASCORBIC ACID;COLECALCIFEROL;LYSINE H [Concomitant]
     Dosage: UNK UNK, QD
     Route: 048
  5. ADEMPAS [Suspect]
     Active Substance: RIOCIGUAT
     Indication: PULMONARY ARTERIAL HYPERTENSION
     Dosage: UNK
     Route: 048
     Dates: start: 20190129
  6. APIXABAN [Concomitant]
     Active Substance: APIXABAN
     Dosage: 5 MG, BID
     Route: 048
  7. LEVOTHYROXINE. [Concomitant]
     Active Substance: LEVOTHYROXINE
     Dosage: 50 ?G
     Route: 048
  8. ALBUTEROL [SALBUTAMOL] [Concomitant]
     Active Substance: ALBUTEROL
     Dosage: 2.5 MG, Q4HR
     Route: 058
  9. HYDROCORTISONE. [Concomitant]
     Active Substance: HYDROCORTISONE
     Dosage: 15 MG, BID
     Route: 048
  10. SODIUM CHLORIDE. [Concomitant]
     Active Substance: SODIUM CHLORIDE
     Dosage: UNK UNK, QD
     Route: 042

REACTIONS (5)
  - Death [Fatal]
  - Confusional state [Recovering/Resolving]
  - Hypotension [Not Recovered/Not Resolved]
  - Penis disorder [None]
  - Oedema [Not Recovered/Not Resolved]

NARRATIVE: CASE EVENT DATE: 20190505
